FAERS Safety Report 20033256 (Version 1)
Quarter: 2021Q4

REPORT INFORMATION
  Report Type: Report from Study
  Country: US (occurrence: US)
  Receive Date: 20211104
  Receipt Date: 20211104
  Transmission Date: 20220303
  Serious: Yes (Other)
  Sender: FDA-Public Use
  Company Number: US-MYLANLABS-2020M1021261

PATIENT
  Sex: Female
  Weight: 68 kg

DRUGS (2)
  1. GLATIRAMER ACETATE [Suspect]
     Active Substance: GLATIRAMER ACETATE
     Indication: Multiple sclerosis
     Dosage: 40 MILLIGRAM, 3XW
     Route: 058
  2. GLATIRAMER ACETATE [Suspect]
     Active Substance: GLATIRAMER ACETATE
     Dosage: 40 MILLIGRAM

REACTIONS (7)
  - Drug ineffective [Unknown]
  - Injection site bruising [Unknown]
  - Injection site mass [Unknown]
  - Injection site atrophy [Unknown]
  - Injection site pain [Unknown]
  - Injection site mass [Unknown]
  - Vision blurred [Recovered/Resolved]
